FAERS Safety Report 12798762 (Version 2)
Quarter: 2016Q4

REPORT INFORMATION
  Report Type: Report from Study
  Country: AR (occurrence: AR)
  Receive Date: 20160930
  Receipt Date: 20161103
  Transmission Date: 20170207
  Serious: Yes (Other)
  Sender: FDA-Public Use
  Company Number: PHHY2016AR134813

PATIENT
  Sex: Male

DRUGS (1)
  1. DIOVAN [Suspect]
     Active Substance: VALSARTAN
     Indication: HYPERTENSION
     Dosage: 2 DF (160 MG), QD (1 IN THE MORNING AND 1 AT NIGHT) (ATLEAST 20 YEARS AGO)
     Route: 065

REACTIONS (7)
  - Dyspnoea [Unknown]
  - Fear [Unknown]
  - Fall [Unknown]
  - Depression [Unknown]
  - Memory impairment [Unknown]
  - Hiatus hernia [Unknown]
  - Back injury [Unknown]
